FAERS Safety Report 7289256-8 (Version None)
Quarter: 2011Q1

REPORT INFORMATION
  Report Type: 
  Country: None (occurrence: None)
  Receive Date: 20110211
  Receipt Date: 20110203
  Transmission Date: 20110831
  Serious: Yes (Hospitalization)
  Sender: FDA-Public Use
  Company Number: US-ASTRAZENECA-2010SE50875

PATIENT
  Age: 53 Year
  Sex: Female

DRUGS (5)
  1. ZMAX [Concomitant]
  2. ASPIRIN [Concomitant]
  3. CRESTOR [Suspect]
     Route: 048
     Dates: start: 20100915, end: 20101024
  4. CRESTOR [Suspect]
     Route: 048
  5. PROZAC [Concomitant]

REACTIONS (4)
  - CHOLECYSTECTOMY [None]
  - ASTHENIA [None]
  - HIGH DENSITY LIPOPROTEIN DECREASED [None]
  - LIVER FUNCTION TEST ABNORMAL [None]
